FAERS Safety Report 20258179 (Version 1)
Quarter: 2021Q4

REPORT INFORMATION
  Report Type: Spontaneous
  Country: US (occurrence: None)
  Receive Date: 20211229
  Receipt Date: 20211229
  Transmission Date: 20220304
  Serious: Yes (Hospitalization)
  Sender: FDA-Public Use
  Company Number: None

PATIENT
  Sex: Male

DRUGS (4)
  1. PULMOZYME [Suspect]
     Active Substance: DORNASE ALFA
     Indication: Cystic fibrosis
     Dosage: OTHER QUANTITY : 2.5/2.5 MG/ML;?FREQUENCY : DAILY;?
     Route: 055
     Dates: start: 20180123
  2. CLINDAMYCIN [Concomitant]
     Active Substance: CLINDAMYCIN
  3. ORKAMBI [Concomitant]
     Active Substance: IVACAFTOR\LUMACAFTOR
  4. TRIKAFTA [Concomitant]
     Active Substance: ELEXACAFTOR\IVACAFTOR\TEZACAFTOR

REACTIONS (3)
  - Pneumonia [None]
  - Pyrexia [None]
  - Therapy interrupted [None]
